FAERS Safety Report 11000209 (Version 1)
Quarter: 2015Q2

REPORT INFORMATION
  Report Type: Spontaneous
  Country: US (occurrence: US)
  Receive Date: 20150408
  Receipt Date: 20150408
  Transmission Date: 20150821
  Serious: No
  Sender: FDA-Public Use
  Company Number: US-SA-2014SA106297

PATIENT
  Age: 40 Year
  Sex: Female

DRUGS (1)
  1. ALLEGRA [Suspect]
     Active Substance: FEXOFENADINE HYDROCHLORIDE
     Indication: MULTIPLE ALLERGIES
     Route: 048
     Dates: start: 201310, end: 201407

REACTIONS (6)
  - Therapeutic response unexpected [Recovered/Resolved]
  - Sleep disorder [Recovered/Resolved]
  - Gastrointestinal pain [Recovered/Resolved]
  - Drug ineffective [Unknown]
  - Gastric disorder [Recovered/Resolved]
  - Anxiety [Recovered/Resolved]
